FAERS Safety Report 5017181-1 (Version None)
Quarter: 2006Q2

REPORT INFORMATION
  Report Type: 
  Country: None (occurrence: None)
  Receive Date: 20060414
  Receipt Date: 20060126
  Transmission Date: 20061013
  Serious: No
  Sender: FDA-Public Use
  Company Number: 2006SP000476

PATIENT
  Age: 50 Year
  Sex: Female
  Weight: 75.7507 kg

DRUGS (4)
  1. LUNESTA [Suspect]
     Indication: INSOMNIA
     Dosage: 3 MG;HS;ORAL
     Route: 048
     Dates: start: 20050801
  2. EFFEXOR [Suspect]
     Indication: DEPRESSION
     Dosage: ORAL
     Route: 048
     Dates: start: 20050101, end: 20051001
  3. ACTIVELLA [Concomitant]
  4. AMBIEN [Concomitant]

REACTIONS (2)
  - MIDDLE INSOMNIA [None]
  - THINKING ABNORMAL [None]
